FAERS Safety Report 15743804 (Version 2)
Quarter: 2019Q1

REPORT INFORMATION
  Report Type: Spontaneous
  Country: ES (occurrence: ES)
  Receive Date: 20181220
  Receipt Date: 20190119
  Transmission Date: 20190417
  Serious: Yes (Other)
  Sender: FDA-Public Use
  Company Number: ES-ASTELLAS-2018US053714

PATIENT
  Age: 40 Year
  Sex: Female

DRUGS (3)
  1. ALPRAZOLAM. [Concomitant]
     Active Substance: ALPRAZOLAM
     Indication: ANXIETY
     Dosage: UNK UNK, UNKNOWN FREQ.
     Route: 065
  2. BETMIGA [Suspect]
     Active Substance: MIRABEGRON
     Indication: HYPERTONIC BLADDER
     Dosage: 50 (UNIT NOT PROVIDED), ONCE DAILY
     Route: 048
     Dates: start: 20181101, end: 20181114
  3. BETMIGA [Suspect]
     Active Substance: MIRABEGRON
     Dosage: 50 (UNIT NOT PROVIDED), ONCE DAILY
     Route: 048
     Dates: start: 20181201, end: 20181206

REACTIONS (2)
  - Pain in extremity [Recovered/Resolved]
  - Gait inability [Recovered/Resolved]

NARRATIVE: CASE EVENT DATE: 20181106
